FAERS Safety Report 9420432 (Version 1)
Quarter: 2013Q3

REPORT INFORMATION
  Report Type: Spontaneous
  Country: US (occurrence: US)
  Receive Date: 20130725
  Receipt Date: 20130725
  Transmission Date: 20140515
  Serious: No
  Sender: FDA-Public Use
  Company Number: US-ABBOTT-13P-163-1070638-00

PATIENT
  Sex: Female
  Weight: 71.28 kg

DRUGS (6)
  1. SYNTHROID [Suspect]
     Indication: HYPOTHYROIDISM
  2. SYNTHROID [Suspect]
  3. SYNTHROID [Suspect]
     Dates: start: 2012
  4. SYNTHROID [Suspect]
  5. PROPRANOLOL [Concomitant]
     Indication: MIGRAINE
  6. ZOCOR [Concomitant]
     Indication: BLOOD CHOLESTEROL INCREASED

REACTIONS (2)
  - Blood thyroid stimulating hormone decreased [Unknown]
  - Dysgeusia [Not Recovered/Not Resolved]
